FAERS Safety Report 21680826 (Version 1)
Quarter: 2022Q4

REPORT INFORMATION
  Report Type: Spontaneous
  Country: IL (occurrence: IL)
  Receive Date: 20221205
  Receipt Date: 20221205
  Transmission Date: 20230113
  Serious: Yes (Other)
  Sender: FDA-Public Use
  Company Number: IL-PFIZER INC-00H-082-0095587-00

PATIENT
  Age: 43 Year
  Sex: Female

DRUGS (12)
  1. VANCOMYCIN HYDROCHLORIDE [Suspect]
     Active Substance: VANCOMYCIN HYDROCHLORIDE
     Indication: Staphylococcal infection
     Dosage: UNK
  2. CEFTAZIDIME [Concomitant]
     Active Substance: CEFTAZIDIME
     Dosage: FREQ: AS NEEDED
     Dates: start: 20000101, end: 20000101
  3. AXOTAL /00727001/ [Concomitant]
     Dosage: FREQ: 4 DAYS
  4. BACTRIM [Concomitant]
     Active Substance: SULFAMETHOXAZOLE\TRIMETHOPRIM
     Dosage: FREQ: 3 DAYS,160/800 MG BID
  5. CYANOCOBALAMIN [Concomitant]
     Active Substance: CYANOCOBALAMIN
     Dosage: 143 UG, FREQ: 2 WEEKS
     Route: 030
  6. DIPHENHYDRAMINE [Concomitant]
     Active Substance: DIPHENHYDRAMINE
     Dosage: UNK
  7. FERROUS SULFATE [Concomitant]
     Active Substance: FERROUS SULFATE
     Dosage: 160 MG, FREQ: 2 DAYS,AS NEEDED
  8. HYDROCORTISONE [Concomitant]
     Active Substance: HYDROCORTISONE
     Dosage: FREQ: 2 DAYS
  9. METAMIZOLE SODIUM [Concomitant]
     Active Substance: METAMIZOLE SODIUM
     Dosage: UNK
  10. ACETAMINOPHEN\PROPOXYPHENE NAPSYLATE [Concomitant]
     Active Substance: ACETAMINOPHEN\PROPOXYPHENE NAPSYLATE
     Dosage: UNK, 3X/DAY
  11. VITAMIN B12 [Concomitant]
     Active Substance: CYANOCOBALAMIN
     Dosage: 1000 MICROGRAM
     Route: 030
  12. DIPYRONE [Concomitant]
     Active Substance: DIPYRONE
     Dosage: AS NEEDED

REACTIONS (15)
  - Thrombocytopenia [Recovered/Resolved]
  - Pancytopenia [Recovered/Resolved]
  - Sepsis [Recovered/Resolved]
  - Chills [Recovered/Resolved]
  - Pyrexia [Recovered/Resolved]
  - Rash macular [Recovered/Resolved]
  - Flushing [Recovered/Resolved]
  - Vancomycin infusion reaction [Recovered/Resolved]
  - Presyncope [Recovered/Resolved]
  - Pruritus [Recovered/Resolved]
  - Pyrexia [Recovered/Resolved]
  - Rash erythematous [Recovered/Resolved]
  - Haemoglobin decreased [Recovered/Resolved]
  - Erythema [Recovered/Resolved]
  - Hypotension [Recovered/Resolved]

NARRATIVE: CASE EVENT DATE: 20000101
